FAERS Safety Report 5029634-0 (Version None)
Quarter: 2006Q2

REPORT INFORMATION
  Report Type: 
  Country: None (occurrence: None)
  Receive Date: 20060620
  Receipt Date: 20040531
  Transmission Date: 20061013
  Serious: Yes (Death, Other)
  Sender: FDA-Public Use
  Company Number: DK-BRISTOL-MYERS SQUIBB COMPANY-13353131

PATIENT
  Age: 66 Year
  Sex: Male

DRUGS (5)
  1. DIDANOSINE [Suspect]
  2. STAVUDINE [Suspect]
  3. LAMIVUDINE [Suspect]
  4. ZIDOVUDINE [Suspect]
  5. ABACAVIR [Suspect]

REACTIONS (1)
  - PANCREATITIS [None]
